FAERS Safety Report 7347817-1 (Version None)
Quarter: 2011Q1

REPORT INFORMATION
  Report Type: 
  Country: None (occurrence: None)
  Receive Date: 20110311
  Receipt Date: 20110301
  Transmission Date: 20110831
  Serious: Yes (Other)
  Sender: FDA-Public Use
  Company Number: JP-MERCK-1101USA03585

PATIENT
  Age: 60 Year
  Sex: Female

DRUGS (2)
  1. FOSAMAX [Suspect]
     Indication: OSTEOPOROSIS
     Dosage: DAILY DOSAGE UNKNOWN
     Route: 048
     Dates: start: 20010101
  2. PREDNISOLONE [Concomitant]
     Indication: DERMATOMYOSITIS
     Dosage: DOSING FREQUENCY UNKNOWN
     Route: 065

REACTIONS (7)
  - PAIN IN EXTREMITY [None]
  - PSEUDARTHROSIS [None]
  - FEMUR FRACTURE [None]
  - DEVICE DAMAGE [None]
  - ARTHRALGIA [None]
  - FALL [None]
  - EXOSTOSIS [None]
